FAERS Safety Report 4344824-8 (Version None)
Quarter: 2004Q2

REPORT INFORMATION
  Report Type: 
  Country: None (occurrence: None)
  Receive Date: 20040420
  Receipt Date: 20040406
  Transmission Date: 20050107
  Serious: Yes (Hospitalization)
  Sender: FDA-Public Use
  Company Number: CA-SHR-03-019223

PATIENT
  Age: 48 Year
  Sex: Male

DRUGS (4)
  1. BETASERON [Suspect]
     Indication: DISEASE PROGRESSION
     Dosage: 8 MIU, EVERY 2D, SUBCUTANEOUS
     Route: 058
     Dates: start: 20000506, end: 20031227
  2. BETASERON [Suspect]
     Indication: MULTIPLE SCLEROSIS
     Dosage: 8 MIU, EVERY 2D, SUBCUTANEOUS
     Route: 058
     Dates: start: 20000506, end: 20031227
  3. BETASERON [Suspect]
     Indication: DISEASE PROGRESSION
     Dosage: 8 MIU, EVERY 2D, SUBCUTANEOUS
     Route: 058
     Dates: start: 20031231
  4. BETASERON [Suspect]
     Indication: MULTIPLE SCLEROSIS
     Dosage: 8 MIU, EVERY 2D, SUBCUTANEOUS
     Route: 058
     Dates: start: 20031231

REACTIONS (4)
  - BLOOD PRESSURE SYSTOLIC INCREASED [None]
  - CHOLECYSTECTOMY [None]
  - HYPERTENSION [None]
  - PAIN [None]
